FAERS Safety Report 9119497 (Version 2)
Quarter: 2013Q1

REPORT INFORMATION
  Report Type: Spontaneous
  Country: US (occurrence: US)
  Receive Date: 20130207
  Receipt Date: 20130313
  Transmission Date: 20140127
  Serious: No
  Sender: FDA-Public Use
  Company Number: US-PFIZER INC-2013047721

PATIENT
  Age: 58 Year
  Sex: Female
  Weight: 61.22 kg

DRUGS (7)
  1. CHANTIX [Suspect]
     Indication: SMOKING CESSATION THERAPY
     Dosage: 0.5 MG, 1X/DAY
     Route: 048
     Dates: start: 201211, end: 201301
  2. AMLODIPINE [Concomitant]
     Indication: HYPERTENSION
     Dosage: UNK
  3. ADVAIR [Concomitant]
     Indication: DYSPNOEA
     Dosage: UNK
  4. ADVAIR [Concomitant]
     Indication: LUNG DISORDER
  5. LORTAB [Concomitant]
     Indication: PAIN
     Dosage: UNK
  6. COMBIVENT [Concomitant]
     Indication: DYSPNOEA
     Dosage: UNK
  7. COMBIVENT [Concomitant]
     Indication: LUNG DISORDER

REACTIONS (3)
  - Drug effect decreased [Not Recovered/Not Resolved]
  - Pulmonary function test abnormal [Unknown]
  - Therapeutic response unexpected [Unknown]
